FAERS Safety Report 25592094 (Version 1)
Quarter: 2025Q3

REPORT INFORMATION
  Report Type: Spontaneous
  Country: US (occurrence: US)
  Receive Date: 20250722
  Receipt Date: 20250722
  Transmission Date: 20251021
  Serious: No
  Sender: BRISTOL-MYERS SQUIBB COMPANY
  Company Number: US-BRISTOL-MYERS SQUIBB COMPANY-2025-102584

PATIENT
  Age: 88 Year
  Sex: Female

DRUGS (2)
  1. KRAZATI [Suspect]
     Active Substance: ADAGRASIB
     Indication: Product used for unknown indication
     Dosage: TAKE 2 TABLETS BY MOUTH IN THE MORNING AND TAKE 1 TABLET BY MOUTH IN THE EVENING
     Route: 048
  2. KRAZATI [Suspect]
     Active Substance: ADAGRASIB
     Dosage: TAKE 2 TABLETS BY MOUTH IN THE MORNING AND TAKE 1 TABLET BY MOUTH IN THE EVENING
     Route: 048

REACTIONS (2)
  - Therapy interrupted [Unknown]
  - Off label use [Unknown]
